FAERS Safety Report 20721127 (Version 1)
Quarter: 2022Q2

REPORT INFORMATION
  Report Type: Spontaneous
  Country: US (occurrence: None)
  Receive Date: 20220415
  Receipt Date: 20220415
  Transmission Date: 20220720
  Serious: No
  Sender: FDA-Public Use
  Company Number: None

PATIENT
  Age: 53 Year
  Sex: Female
  Weight: 102.15 kg

DRUGS (1)
  1. WEGOVY [Suspect]
     Active Substance: SEMAGLUTIDE
     Indication: Weight control
     Dosage: OTHER FREQUENCY : ONCE A WEEK INJECT;?
     Route: 030
     Dates: start: 20220415, end: 20220415

REACTIONS (6)
  - Fatigue [None]
  - Nausea [None]
  - Paraesthesia oral [None]
  - Vision blurred [None]
  - Feeling abnormal [None]
  - Headache [None]

NARRATIVE: CASE EVENT DATE: 20220415
